FAERS Safety Report 16810859 (Version 2)
Quarter: 2019Q3

REPORT INFORMATION
  Report Type: Report from Study
  Country: DE (occurrence: DE)
  Receive Date: 20190916
  Receipt Date: 20190925
  Transmission Date: 20191005
  Serious: Yes (Hospitalization)
  Sender: FDA-Public Use
  Company Number: DE-GLAXOSMITHKLINE-DE2019GSK165125

PATIENT
  Age: 60 Year
  Sex: Male

DRUGS (1)
  1. UMECLIDINIUM BROMIDE [Suspect]
     Active Substance: UMECLIDINIUM BROMIDE
     Indication: CHRONIC OBSTRUCTIVE PULMONARY DISEASE
     Dosage: UNK
     Route: 055
     Dates: start: 20170906, end: 20181127

REACTIONS (1)
  - Hospitalisation [Recovered/Resolved with Sequelae]

NARRATIVE: CASE EVENT DATE: 2018
